FAERS Safety Report 21266159 (Version 5)
Quarter: 2022Q4

REPORT INFORMATION
  Report Type: Spontaneous
  Country: US (occurrence: US)
  Receive Date: 20220829
  Receipt Date: 20221230
  Transmission Date: 20230113
  Serious: No
  Sender: FDA-Public Use
  Company Number: US-PFIZER INC-PV202200046243

PATIENT
  Age: 70 Year
  Sex: Female

DRUGS (1)
  1. XALKORI [Suspect]
     Active Substance: CRIZOTINIB
     Dosage: 200 MG

REACTIONS (4)
  - Product dose omission issue [Unknown]
  - Pain in extremity [Unknown]
  - Back pain [Unknown]
  - Breast pain [Unknown]
